FAERS Safety Report 8028931-4 (Version None)
Quarter: 2012Q1

REPORT INFORMATION
  Report Type: 
  Country: None (occurrence: None)
  Receive Date: 20120106
  Receipt Date: 20120104
  Transmission Date: 20120608
  Serious: No
  Sender: FDA-Public Use
  Company Number: US-BAYER-2012-001637

PATIENT
  Age: 69 Year
  Sex: Male
  Weight: 79.365 kg

DRUGS (6)
  1. ALEVE (CAPLET) [Suspect]
     Indication: BACK PAIN
     Dosage: 1 TAB TWICE DAILY
     Route: 048
     Dates: start: 20110427
  2. COREG [Concomitant]
  3. PLAVIX [Concomitant]
  4. PRILOSEC [Concomitant]
  5. ASPIRIN [Concomitant]
  6. LIPITOR [Concomitant]

REACTIONS (1)
  - NO ADVERSE EVENT [None]
